FAERS Safety Report 14528465 (Version 1)
Quarter: 2018Q1

REPORT INFORMATION
  Report Type: Spontaneous
  Country: GB (occurrence: GB)
  Receive Date: 20180214
  Receipt Date: 20180214
  Transmission Date: 20180509
  Serious: Yes (Other)
  Sender: FDA-Public Use
  Company Number: GB-DEXPHARM-20180089

PATIENT
  Age: 84 Year
  Sex: Female

DRUGS (8)
  1. ATENOLOL. [Suspect]
     Active Substance: ATENOLOL
  2. LISINOPRIL. [Suspect]
     Active Substance: LISINOPRIL
  3. MIRABEGRON [Suspect]
     Active Substance: MIRABEGRON
  4. OMEPRAZOLE. [Suspect]
     Active Substance: OMEPRAZOLE
  5. CORACTEN [Suspect]
     Active Substance: NIFEDIPINE
  6. ASPIRIN. [Suspect]
     Active Substance: ASPIRIN
  7. CO-CARELDOPA [Suspect]
     Active Substance: CARBIDOPA\LEVODOPA
  8. PRAMIPEXOLE. [Suspect]
     Active Substance: PRAMIPEXOLE

REACTIONS (1)
  - Anxiety [Unknown]

NARRATIVE: CASE EVENT DATE: 20171104
